FAERS Safety Report 5191588-4 (Version None)
Quarter: 2006Q4

REPORT INFORMATION
  Report Type: 
  Country: None (occurrence: None)
  Receive Date: 20061219
  Receipt Date: 20061207
  Transmission Date: 20070319
  Serious: Yes (Hospitalization)
  Sender: FDA-Public Use
  Company Number: GXKR2006TW08017

PATIENT
  Age: 51 Year
  Sex: Male

DRUGS (4)
  1. BUPROPION HCL [Suspect]
     Indication: ASTHENIA
     Dosage: 150 MG, QD,
  2. FLUOXETINE [Suspect]
     Indication: DEPRESSION
     Dosage: SEE IMAGE
  3. BROMAZEPAM (BROMAZEPAM) [Concomitant]
  4. ALPRAZOLAM [Concomitant]

REACTIONS (2)
  - DELIRIUM [None]
  - DRUG INTERACTION [None]
